FAERS Safety Report 21870023 (Version 3)
Quarter: 2023Q2

REPORT INFORMATION
  Report Type: Report from Study
  Country: US (occurrence: US)
  Receive Date: 20230117
  Receipt Date: 20230411
  Transmission Date: 20230721
  Serious: No
  Sender: FDA-Public Use
  Company Number: US-ABBVIE-4270665

PATIENT
  Age: 78 Year
  Sex: Female

DRUGS (4)
  1. HUMIRA [Suspect]
     Active Substance: ADALIMUMAB
     Indication: Psoriatic arthropathy
     Dosage: CITRATE FREE, 40 MG
     Route: 058
     Dates: start: 20170908
  2. HUMIRA [Suspect]
     Active Substance: ADALIMUMAB
     Indication: Psoriasis
  3. REPATHA [Concomitant]
     Active Substance: EVOLOCUMAB
     Indication: Product used for unknown indication
  4. PFIZER-BIONTECH COVID-19 VACCINE [Concomitant]
     Active Substance: TOZINAMERAN
     Indication: COVID-19 immunisation
     Route: 030
     Dates: start: 20210801, end: 20210801

REACTIONS (11)
  - Stomatitis [Unknown]
  - Condition aggravated [Not Recovered/Not Resolved]
  - Taste disorder [Unknown]
  - Pain [Unknown]
  - Sinus disorder [Unknown]
  - Precancerous cells present [Unknown]
  - Noninfective gingivitis [Unknown]
  - Anal ulcer [Unknown]
  - Arthralgia [Unknown]
  - Adnexa uteri pain [Unknown]
  - Ovarian cyst [Unknown]

NARRATIVE: CASE EVENT DATE: 20221101
